FAERS Safety Report 7076890-3 (Version None)
Quarter: 2010Q4

REPORT INFORMATION
  Report Type: 
  Country: None (occurrence: None)
  Receive Date: 20101029
  Receipt Date: 20101029
  Transmission Date: 20110411
  Serious: No
  Sender: FDA-Public Use
  Company Number: None

PATIENT
  Age: 32 Year
  Sex: Male
  Weight: 136.0791 kg

DRUGS (2)
  1. MIRACLE MINERAL SOLUTION 28% SODIUM CLORITE GLOBAL MMS [Suspect]
     Dosage: 15 DROPS TWICE DAILY PO
     Route: 048
     Dates: start: 20100730, end: 20100930
  2. CITRIC ACID 50% GLOBAL MMS [Suspect]
     Dosage: 15 DROPS TWICE DAILY PO
     Route: 048
     Dates: start: 20100730, end: 20100930

REACTIONS (2)
  - OEDEMA PERIPHERAL [None]
  - PAIN IN EXTREMITY [None]
